FAERS Safety Report 15468709 (Version 2)
Quarter: 2018Q4

REPORT INFORMATION
  Report Type: Spontaneous
  Country: EE (occurrence: EE)
  Receive Date: 20181005
  Receipt Date: 20181011
  Transmission Date: 20190204
  Serious: Yes (Other)
  Sender: FDA-Public Use
  Company Number: EE-REGENERON PHARMACEUTICALS, INC.-2018-39466

PATIENT

DRUGS (1)
  1. EYLEA [Suspect]
     Active Substance: AFLIBERCEPT
     Indication: NEOVASCULAR AGE-RELATED MACULAR DEGENERATION
     Dosage: IN 2017 RECEIVED 7 EYLEA INJECTION, IN 2018 RECEIVED 3 EYLEA INJECTION OD
     Dates: start: 2017

REACTIONS (4)
  - Inappropriate schedule of product administration [Unknown]
  - Retinal haemorrhage [Unknown]
  - Retinal fibrosis [Unknown]
  - Choroidal neovascularisation [Unknown]
